FAERS Safety Report 21996583 (Version 1)
Quarter: 2023Q1

REPORT INFORMATION
  Report Type: Spontaneous
  Country: US (occurrence: US)
  Receive Date: 20230215
  Receipt Date: 20230215
  Transmission Date: 20230417
  Serious: No
  Sender: FDA-Public Use
  Company Number: US-ALLERGAN-2224160US

PATIENT
  Sex: Female

DRUGS (5)
  1. VIIBRYD [Suspect]
     Active Substance: VILAZODONE HYDROCHLORIDE
     Indication: Depression
     Dosage: 40 MG, QD
     Route: 048
     Dates: start: 2020
  2. COVID-19 VACCINE [Concomitant]
     Indication: COVID-19 immunisation
     Dosage: UNK, SINGLE
     Route: 030
     Dates: start: 20220421, end: 20220421
  3. COVID-19 VACCINE [Concomitant]
     Dosage: UNK, SINGLE
     Route: 030
     Dates: start: 20210820, end: 20210820
  4. COVID-19 VACCINE [Concomitant]
     Dosage: UNK, SINGLE
     Route: 030
     Dates: start: 20210129, end: 20210129
  5. COVID-19 VACCINE [Concomitant]
     Dosage: UNK, SINGLE
     Route: 030
     Dates: start: 20210108, end: 20210108

REACTIONS (1)
  - Body temperature increased [Not Recovered/Not Resolved]

NARRATIVE: CASE EVENT DATE: 20200101
